FAERS Safety Report 6497356-5 (Version None)
Quarter: 2009Q4

REPORT INFORMATION
  Report Type: 
  Country: None (occurrence: None)
  Receive Date: 20091215
  Receipt Date: 20091112
  Transmission Date: 20100525
  Serious: No
  Sender: FDA-Public Use
  Company Number: A0811597A

PATIENT
  Age: 93 Year
  Sex: Male

DRUGS (3)
  1. AVODART [Suspect]
     Indication: NOCTURIA
     Route: 048
     Dates: start: 20090401, end: 20090401
  2. LOTREL [Concomitant]
  3. METOPROLOL [Concomitant]

REACTIONS (1)
  - NIPPLE PAIN [None]
